FAERS Safety Report 6563160-2 (Version None)
Quarter: 2010Q1

REPORT INFORMATION
  Report Type: 
  Country: None (occurrence: None)
  Receive Date: 20100130
  Receipt Date: 20091208
  Transmission Date: 20100710
  Serious: No
  Sender: FDA-Public Use
  Company Number: US-ABBOTT-09P-163-0613662-00

PATIENT
  Sex: Male
  Weight: 108.96 kg

DRUGS (8)
  1. HUMIRA [Suspect]
     Indication: RHEUMATOID ARTHRITIS
     Route: 058
     Dates: start: 20090801
  2. PREDNISONE [Concomitant]
     Indication: DRUG USE FOR UNKNOWN INDICATION
  3. TOPROL-XL [Concomitant]
     Indication: DRUG USE FOR UNKNOWN INDICATION
  4. CRESTOR [Concomitant]
     Indication: DRUG USE FOR UNKNOWN INDICATION
  5. B100 [Concomitant]
     Indication: DRUG USE FOR UNKNOWN INDICATION
  6. M.V.I. [Concomitant]
     Indication: DRUG USE FOR UNKNOWN INDICATION
  7. VIT C [Concomitant]
     Indication: DRUG USE FOR UNKNOWN INDICATION
  8. BABY ASPIRIN [Concomitant]
     Indication: DRUG USE FOR UNKNOWN INDICATION

REACTIONS (1)
  - NASOPHARYNGITIS [None]
